FAERS Safety Report 4320154-5 (Version None)
Quarter: 2004Q1

REPORT INFORMATION
  Report Type: 
  Country: None (occurrence: None)
  Receive Date: 20040317
  Receipt Date: 20040303
  Transmission Date: 20041129
  Serious: Yes (Other)
  Sender: FDA-Public Use
  Company Number: 2004014649

PATIENT
  Age: 58 Year
  Sex: Male

DRUGS (10)
  1. VIAGRA [Suspect]
     Indication: ERECTILE DYSFUNCTION
     Dosage: 100 MG (PRN), ORAL
     Route: 048
     Dates: start: 20030101, end: 20030101
  2. DILTIAZEM [Concomitant]
  3. PRINZIDE (HYDRODHLOROTHIAZIDE, LISINOPRIL) [Concomitant]
  4. LISINOPRIL [Concomitant]
  5. MOXONIDINE (MOXONIDINE) [Concomitant]
  6. TERAZOSIN (TERAZOSIN) [Concomitant]
  7. RILMENIDINE (RILMENIDINE) [Concomitant]
  8. NITROGLYCERIN [Concomitant]
  9. DILTIAZEM HYDROCHLORIDE (DILTIAZMEN HYDROCHLORIDE) [Concomitant]
  10. ALL OTHER THERAPEUTIC PRODUCTS [Concomitant]

REACTIONS (1)
  - LOSS OF CONSCIOUSNESS [None]
